FAERS Safety Report 6222070-0 (Version None)
Quarter: 2009Q2

REPORT INFORMATION
  Report Type: 
  Country: None (occurrence: None)
  Receive Date: 20090608
  Receipt Date: 20090608
  Transmission Date: 20091009
  Serious: Yes (Other)
  Sender: FDA-Public Use
  Company Number: None

PATIENT
  Sex: Male
  Weight: 90.7194 kg

DRUGS (2)
  1. RANEXA [Suspect]
     Indication: ANGINA PECTORIS
     Dosage: 500 MG BID PO
     Route: 048
     Dates: start: 20080620, end: 20090606
  2. RANEXA [Suspect]
     Indication: ARTERIOSCLEROSIS CORONARY ARTERY
     Dosage: 500 MG BID PO
     Route: 048
     Dates: start: 20080620, end: 20090606

REACTIONS (1)
  - ESSENTIAL TREMOR [None]
